FAERS Safety Report 17591706 (Version 18)
Quarter: 2021Q3

REPORT INFORMATION
  Report Type: Report from Study
  Country: US (occurrence: US)
  Receive Date: 20200327
  Receipt Date: 20210920
  Transmission Date: 20211014
  Serious: Yes (Other)
  Sender: FDA-Public Use
  Company Number: US-GLAXOSMITHKLINE-US2019TSO223882

PATIENT
  Sex: Female

DRUGS (15)
  1. NIRAPARIB [Suspect]
     Active Substance: NIRAPARIB
     Indication: OVARIAN CANCER
     Dosage: 300 MG, QD
     Route: 048
     Dates: start: 201911
  2. NIRAPARIB [Suspect]
     Active Substance: NIRAPARIB
     Dosage: 300 MG, QD AM WITH FOOD
     Route: 048
     Dates: start: 20191204, end: 202007
  3. NIRAPARIB [Suspect]
     Active Substance: NIRAPARIB
     Dosage: 300 MG, QD
     Route: 048
  4. NIRAPARIB [Suspect]
     Active Substance: NIRAPARIB
     Dosage: 300 MG, QD
     Route: 048
  5. NIRAPARIB [Suspect]
     Active Substance: NIRAPARIB
     Dosage: 300 MG, QD
  6. NIRAPARIB [Suspect]
     Active Substance: NIRAPARIB
     Dosage: 300 MG, QD
     Route: 048
     Dates: end: 20201217
  7. NIRAPARIB [Suspect]
     Active Substance: NIRAPARIB
     Dosage: 300 MG, QD
     Route: 048
  8. NIRAPARIB [Suspect]
     Active Substance: NIRAPARIB
     Dosage: 300 MG, QD
     Route: 048
     Dates: start: 20201220
  9. NIRAPARIB [Suspect]
     Active Substance: NIRAPARIB
     Dosage: 300 MG, QD
  10. NIRAPARIB [Suspect]
     Active Substance: NIRAPARIB
     Dosage: 300 MG, QD
  11. NIRAPARIB [Suspect]
     Active Substance: NIRAPARIB
     Dosage: 300 MG, QD
     Route: 048
     Dates: end: 202007
  12. NIRAPARIB [Suspect]
     Active Substance: NIRAPARIB
     Dosage: 300MG, QD, PM WITH FOOD
     Route: 048
  13. NIRAPARIB [Suspect]
     Active Substance: NIRAPARIB
     Dosage: 300 MG, QD
  14. NIRAPARIB [Suspect]
     Active Substance: NIRAPARIB
     Dosage: 300 MG, QD
  15. NIRAPARIB [Suspect]
     Active Substance: NIRAPARIB
     Dosage: 300 MG, QD
     Route: 048

REACTIONS (44)
  - Stoma site haemorrhage [Not Recovered/Not Resolved]
  - Pharyngeal hypoaesthesia [Recovering/Resolving]
  - Insomnia [Not Recovered/Not Resolved]
  - Ear pain [Unknown]
  - Nausea [Recovering/Resolving]
  - Condition aggravated [Unknown]
  - Vomiting [Recovering/Resolving]
  - Decreased appetite [Recovering/Resolving]
  - Urinary tract infection [Recovered/Resolved]
  - Large intestinal ulcer [Unknown]
  - Dyspepsia [Recovered/Resolved]
  - Colitis [Unknown]
  - Oropharyngeal pain [Not Recovered/Not Resolved]
  - Mobility decreased [Unknown]
  - Neuropathy peripheral [Not Recovered/Not Resolved]
  - Hypoaesthesia oral [Recovering/Resolving]
  - Dizziness [Not Recovered/Not Resolved]
  - Candida infection [Recovered/Resolved]
  - Malaise [Unknown]
  - Neuralgia [Unknown]
  - Stomatitis [Not Recovered/Not Resolved]
  - Colostomy [Unknown]
  - Breast pain [Not Recovered/Not Resolved]
  - Oropharyngeal spasm [Not Recovered/Not Resolved]
  - Rectal discharge [Recovering/Resolving]
  - Constipation [Recovered/Resolved]
  - Joint stiffness [Unknown]
  - Chest pain [Not Recovered/Not Resolved]
  - Choking [Not Recovered/Not Resolved]
  - Rash [Recovering/Resolving]
  - Diarrhoea [Recovered/Resolved]
  - Dry mouth [Recovering/Resolving]
  - Ear infection [Unknown]
  - Retching [Not Recovered/Not Resolved]
  - Arthralgia [Not Recovered/Not Resolved]
  - Dysphagia [Not Recovered/Not Resolved]
  - Dry throat [Recovering/Resolving]
  - Bladder spasm [Recovered/Resolved]
  - Peripheral swelling [Unknown]
  - Dermatitis contact [Not Recovered/Not Resolved]
  - Gastrooesophageal reflux disease [Not Recovered/Not Resolved]
  - Muscle spasms [Unknown]
  - Sleep disorder due to a general medical condition [Recovering/Resolving]
  - Asthenia [Not Recovered/Not Resolved]
